FAERS Safety Report 5198027-8 (Version None)
Quarter: 2007Q1

REPORT INFORMATION
  Report Type: 
  Country: None (occurrence: None)
  Receive Date: 20070104
  Receipt Date: 20061228
  Transmission Date: 20070707
  Serious: Yes (Hospitalization)
  Sender: FDA-Public Use
  Company Number: SE-AVENTIS-200623061GDDC

PATIENT
  Age: 77 Year
  Sex: Female

DRUGS (10)
  1. FLAGYL [Suspect]
     Indication: SEPSIS
     Dosage: DOSE: (5MG/ML) 300 ML/DAY
     Route: 042
     Dates: start: 20061004, end: 20061009
  2. NEXIUM [Suspect]
     Indication: PROPHYLAXIS
     Dosage: DOSE: 40 MG/DAY
     Dates: start: 20060925, end: 20061002
  3. EUSAPRIM                           /00086101/ [Suspect]
     Indication: SEPSIS
     Dosage: DOSE: 20 ML/DAY
     Route: 042
     Dates: start: 20061002, end: 20061009
  4. CIPROXIN                           /00697201/ [Suspect]
     Indication: SEPSIS
     Dosage: DOSE: (2MG/ML) 400 MG/DAY
     Route: 042
     Dates: start: 20060926, end: 20061001
  5. DIFLUCAN [Suspect]
     Indication: SEPSIS
     Dosage: DOSE: (2MG/ML) 400 MG/DAY
     Route: 042
     Dates: start: 20061003, end: 20061005
  6. ATENOLOL [Concomitant]
  7. ACTRAPID [Concomitant]
  8. LEVAXIN [Concomitant]
  9. SIMVASTIN [Concomitant]
  10. LANTUS [Concomitant]

REACTIONS (4)
  - CHOLESTASIS [None]
  - DIALYSIS [None]
  - HEPATIC FIBROSIS [None]
  - MULTI-ORGAN FAILURE [None]
